FAERS Safety Report 6749996-3 (Version None)
Quarter: 2010Q2

REPORT INFORMATION
  Report Type: 
  Country: None (occurrence: None)
  Receive Date: 20100601
  Receipt Date: 20100524
  Transmission Date: 20101027
  Serious: Yes (Hospitalization)
  Sender: FDA-Public Use
  Company Number: US-SANOFI-AVENTIS-2010SA030035

PATIENT
  Age: 52 Year
  Sex: Male

DRUGS (6)
  1. DEMEROL [Suspect]
     Route: 065
     Dates: start: 20100115, end: 20100115
  2. VERSED [Suspect]
     Route: 065
     Dates: start: 20100115, end: 20100115
  3. MORPHINE [Suspect]
     Route: 065
     Dates: start: 20100115, end: 20100115
  4. PERCOCET [Concomitant]
     Indication: BACK PAIN
     Dates: start: 20040101
  5. TESTOSTERONE [Concomitant]
     Indication: HYPOGONADISM
     Dates: start: 20091009, end: 20091211
  6. IBUPROFEN [Concomitant]
     Indication: HEADACHE
     Dates: start: 19930501

REACTIONS (3)
  - ABDOMINAL PAIN [None]
  - AGITATION [None]
  - HEPATIC HAEMATOMA [None]
